FAERS Safety Report 8808050 (Version 1)
Quarter: 2012Q4

REPORT INFORMATION
  Report Type: 
  Country: US (occurrence: US)
  Receive Date: 20120925
  Receipt Date: 20120925
  Transmission Date: 20130627
  Serious: Yes (Hospitalization)
  Sender: FDA-Public Use
  Company Number: US-BRISTOL-MYERS SQUIBB COMPANY-16965923

PATIENT
  Age: 13 Year
  Sex: Female

DRUGS (1)
  1. SPRYCEL [Suspect]
     Indication: ACUTE LYMPHOCYTIC LEUKAEMIA
     Dosage: Dose decreased to 60 mg/day
     Dates: start: 20120730

REACTIONS (2)
  - Hallucination [Unknown]
  - Mania [Unknown]
